FAERS Safety Report 8390658-7 (Version None)
Quarter: 2012Q2

REPORT INFORMATION
  Report Type: 
  Country: None (occurrence: None)
  Receive Date: 20120529
  Receipt Date: 20120524
  Transmission Date: 20120825
  Serious: Yes (Hospitalization, Other)
  Sender: FDA-Public Use
  Company Number: PHHO2012US007642

PATIENT
  Sex: Male
  Weight: 114.74 kg

DRUGS (7)
  1. DIOVAN HCT [Suspect]
     Indication: HYPERTENSION
     Dosage: 80 MG/12.5MG, QD
     Route: 048
     Dates: start: 20060101
  2. ALDACTONE [Suspect]
     Indication: HYPERTENSION
     Dosage: 25 MG, BID
     Route: 048
     Dates: start: 20060101
  3. PROTONIX [Concomitant]
     Indication: REFLUX GASTRITIS
     Dosage: 40 MG, QD
     Route: 048
     Dates: start: 20020101
  4. CRESTOR [Concomitant]
     Indication: HYPERLIPIDAEMIA
     Dosage: 5 MG, QD
     Route: 048
     Dates: start: 20060101
  5. KEFLEX [Concomitant]
     Indication: INFECTION
     Dosage: 500 MG, BID
     Route: 048
     Dates: start: 20120416, end: 20120426
  6. ALLOPURINOL [Concomitant]
     Indication: GOUT
     Dosage: 50 MG, QD
     Route: 048
     Dates: start: 20080101
  7. TASIGNA [Suspect]
     Indication: CHRONIC MYELOID LEUKAEMIA
     Dosage: 300 MG, BID
     Route: 048
     Dates: start: 20120507, end: 20120515

REACTIONS (2)
  - HICCUPS [None]
  - HYPONATRAEMIA [None]
